FAERS Safety Report 6274286-5 (Version None)
Quarter: 2009Q3

REPORT INFORMATION
  Report Type: 
  Country: None (occurrence: None)
  Receive Date: 20090720
  Receipt Date: 20090624
  Transmission Date: 20100115
  Serious: Yes (Other)
  Sender: FDA-Public Use
  Company Number: US-BAYER-200924667NA

PATIENT
  Age: 40 Year
  Sex: Female

DRUGS (2)
  1. MAGNEVIST [Suspect]
     Indication: NUCLEAR MAGNETIC RESONANCE IMAGING
     Dates: start: 20080101, end: 20080101
  2. MAGNEVIST [Suspect]
     Dates: start: 20090416, end: 20090416

REACTIONS (2)
  - LOCALISED INFECTION [None]
  - PROCEDURAL PAIN [None]
